FAERS Safety Report 8589787 (Version 5)
Quarter: 2013Q4

REPORT INFORMATION
  Report Type: Spontaneous
  Country: US (occurrence: US)
  Receive Date: 20120601
  Receipt Date: 20131209
  Transmission Date: 20140711
  Serious: Yes (Hospitalization, Other)
  Sender: FDA-Public Use
  Company Number: US-AMGEN-USASP2012032272

PATIENT
  Age: 59 Year
  Sex: Male
  Weight: 97 kg

DRUGS (24)
  1. NPLATE [Suspect]
     Indication: THROMBOCYTOPENIA
     Dosage: 7 MUG/KG, UNK
     Route: 058
     Dates: start: 20120316
  2. NPLATE [Suspect]
  3. NPLATE [Suspect]
  4. NPLATE [Suspect]
  5. NPLATE [Suspect]
  6. POSACONAZOLE [Concomitant]
     Indication: PROPHYLAXIS
     Dosage: 200 MG, UNK
     Route: 048
  7. PREDNISONE [Concomitant]
     Indication: GRAFT VERSUS HOST DISEASE
     Dosage: 20 MG, UNK
     Route: 048
  8. BUDESONIDE [Concomitant]
     Indication: GRAFT VERSUS HOST DISEASE
     Dosage: 3 MG, UNK
     Route: 048
  9. ATOVAQUONE [Concomitant]
     Indication: INFECTION PROPHYLAXIS
     Dosage: 750 MG, BID
     Route: 048
  10. ACYCLOVIR                          /00587301/ [Concomitant]
     Indication: PROPHYLAXIS
     Dosage: 400 MG, UNK
     Route: 048
  11. FLUDARABINE [Concomitant]
     Indication: CHRONIC LYMPHOCYTIC LEUKAEMIA
     Dosage: 40 MG/M2 X 4 DAYS
  12. CYCLOPHOSPHAMIDE [Concomitant]
     Indication: CHRONIC LYMPHOCYTIC LEUKAEMIA
  13. RITUXIMAB [Concomitant]
     Indication: CHRONIC LYMPHOCYTIC LEUKAEMIA
  14. BENDAMUSTINE [Concomitant]
     Indication: CHRONIC LYMPHOCYTIC LEUKAEMIA
  15. DOXORUBICIN [Concomitant]
     Indication: CHRONIC LYMPHOCYTIC LEUKAEMIA
  16. VINCRISTINE [Concomitant]
     Indication: CHRONIC LYMPHOCYTIC LEUKAEMIA
  17. OXALIPLATIN [Concomitant]
     Indication: CHRONIC LYMPHOCYTIC LEUKAEMIA
  18. CYTARABINE [Concomitant]
     Indication: CHRONIC LYMPHOCYTIC LEUKAEMIA
  19. ALEMTUZUMAB [Concomitant]
     Indication: CHRONIC LYMPHOCYTIC LEUKAEMIA
     Dosage: 10 MG/M2, X 4 DAYS.
  20. MELPHALAN [Concomitant]
     Indication: CHRONIC LYMPHOCYTIC LEUKAEMIA
     Dosage: 140 MG/M2, 1 DOSE
  21. CEFEPIME [Concomitant]
     Indication: PROPHYLAXIS
  22. GANCICLOVIR [Concomitant]
     Indication: PROPHYLAXIS
  23. DAPSONE [Concomitant]
     Indication: PROPHYLAXIS
  24. SIROLIMUS [Concomitant]

REACTIONS (4)
  - Therapeutic response decreased [Not Recovered/Not Resolved]
  - Haemolytic anaemia [Unknown]
  - Renal failure acute [Unknown]
  - Thrombocytopenia [Not Recovered/Not Resolved]
